FAERS Safety Report 12538223 (Version 1)
Quarter: 2016Q3

REPORT INFORMATION
  Report Type: Spontaneous
  Country: US (occurrence: US)
  Receive Date: 20160707
  Receipt Date: 20160707
  Transmission Date: 20161109
  Serious: No
  Sender: FDA-Public Use
  Company Number: US-KALEO, INC-EVZI20160006

PATIENT
  Age: 35 Year
  Sex: Female

DRUGS (1)
  1. EVZIO [Suspect]
     Active Substance: NALOXONE HYDROCHLORIDE
     Indication: ACCIDENTAL EXPOSURE TO PRODUCT
     Dosage: ONCE IM OR SC
     Dates: start: 20160429, end: 20160429

REACTIONS (2)
  - Accidental exposure to product [None]
  - No adverse event [None]

NARRATIVE: CASE EVENT DATE: 20160429
